FAERS Safety Report 10517395 (Version 1)
Quarter: 2014Q4

REPORT INFORMATION
  Report Type: Spontaneous
  Country: US (occurrence: None)
  Receive Date: 20141003
  Receipt Date: 20141003
  Transmission Date: 20150528
  Serious: Yes (Other)
  Sender: FDA-Public Use
  Company Number: 2013-18601

PATIENT
  Age: 52 Year
  Sex: Female

DRUGS (2)
  1. ALENDRONATE SODIUM. [Suspect]
     Active Substance: ALENDRONATE SODIUM
     Indication: OSTEOPOROSIS
     Dosage: AS PRESCRIBED IN A FORSEEABLE MANNER
     Route: 048
     Dates: start: 201204
  2. FOSAMAX [Suspect]
     Active Substance: ALENDRONATE SODIUM
     Dosage: TREATMENT OF OSTEOPEROSIS (OSTEOPEROSIS)
     Route: 048
     Dates: start: 199810, end: 201212

REACTIONS (3)
  - Lower limb fracture [None]
  - Femur fracture [None]
  - Incorrect drug administration duration [None]
